FAERS Safety Report 18195876 (Version 7)
Quarter: 2023Q4

REPORT INFORMATION
  Report Type: Report from Study
  Country: JP (occurrence: JP)
  Receive Date: 20200826
  Receipt Date: 20231204
  Transmission Date: 20240110
  Serious: Yes (Hospitalization)
  Sender: FDA-Public Use
  Company Number: JP-ABBVIE-19K-087-2953316-00

PATIENT
  Age: 74 Year
  Sex: Male
  Weight: 52 kg

DRUGS (37)
  1. CARBIDOPA\LEVODOPA [Suspect]
     Active Substance: CARBIDOPA\LEVODOPA
     Indication: Parkinson^s disease
     Dosage: MD: 9.0 ML, CD: 2.7 ML/HR ? 16 HRS, ED: 1.3 ML/UNIT ? 2
     Route: 050
     Dates: start: 20210216, end: 20210329
  2. CARBIDOPA\LEVODOPA [Suspect]
     Active Substance: CARBIDOPA\LEVODOPA
     Dosage: MD: 9.0 ML, CD: 2.3 ML/HR ? 16 HRS, ED: 1.3 ML/UNIT ? 2
     Route: 050
     Dates: start: 20210715
  3. CARBIDOPA\LEVODOPA [Suspect]
     Active Substance: CARBIDOPA\LEVODOPA
     Dosage: MD: 4.0 ML?CD: 1.6 ML/HR ? 16 HRS
     Route: 050
     Dates: start: 20190724, end: 20190725
  4. CARBIDOPA\LEVODOPA [Suspect]
     Active Substance: CARBIDOPA\LEVODOPA
     Dosage: MD: 9 ML?CD: 2.7 ML/HR ? 16 HRS?ED: 1.7 ML/UNIT ? 2
     Route: 050
     Dates: start: 20200713, end: 20210216
  5. CARBIDOPA\LEVODOPA [Suspect]
     Active Substance: CARBIDOPA\LEVODOPA
     Dosage: MD: 6.0 ML,?CD: 2.0 ML/HR ? 16 HRS?ED: 1.5 ML/UNIT ? 2
     Route: 050
     Dates: start: 20190725, end: 20190725
  6. CARBIDOPA\LEVODOPA [Suspect]
     Active Substance: CARBIDOPA\LEVODOPA
     Dosage: MD: 9.0 ML, CD: 2.3 ML/HR ? 16 HRS, ED: 1.3 ML/UNIT ? 2
     Route: 050
     Dates: start: 20210622, end: 20210714
  7. CARBIDOPA\LEVODOPA [Suspect]
     Active Substance: CARBIDOPA\LEVODOPA
     Dosage: MD: 6.0 ML?CD: 2.4 ML/HR ? 16 HRS?ED: 2.0 ML/UNIT ? 2
     Route: 050
     Dates: start: 20190726, end: 20190726
  8. CARBIDOPA\LEVODOPA [Suspect]
     Active Substance: CARBIDOPA\LEVODOPA
     Dosage: MD: 9.0 ML, CD: 2.4 ML/HR ? 16 HRS, ED: 1.3 ML/UNIT ? 2
     Route: 050
     Dates: start: 20210427, end: 20210622
  9. CARBIDOPA\LEVODOPA [Suspect]
     Active Substance: CARBIDOPA\LEVODOPA
     Dosage: MD: 6.0 ML?CD: 2.2 ML/HR ? 16 HRS?ED: 2.0 ML/UNIT ? 2
     Route: 050
     Dates: start: 20190729, end: 20190805
  10. CARBIDOPA\LEVODOPA [Suspect]
     Active Substance: CARBIDOPA\LEVODOPA
     Dosage: MD: 9.0 ML, CD: 2.6 ML/HR ? 16 HRS, ED: 1.3 ML/UNIT ? 2
     Route: 050
     Dates: start: 20210329, end: 20210427
  11. CARBIDOPA\LEVODOPA [Suspect]
     Active Substance: CARBIDOPA\LEVODOPA
     Dosage: MD: 6.0 ML?CD: 2.2 ML/HR ? 16 HRS?ED: 1.7 ML/UNIT ? 2
     Route: 050
     Dates: start: 20190806, end: 20190808
  12. CARBIDOPA\LEVODOPA [Suspect]
     Active Substance: CARBIDOPA\LEVODOPA
     Dosage: MD: 9.0 ML?CD: 2.2 ML/HR ? 16 HRS?ED: 1.7 ML/UNIT ? 2
     Route: 050
     Dates: start: 20190809, end: 20190822
  13. CARBIDOPA\LEVODOPA [Suspect]
     Active Substance: CARBIDOPA\LEVODOPA
     Dosage: MD: 9.0 ML?CD: 2.6 ML/HR ? 16 HRS?ED: 1.7 ML/UNIT ? 2
     Route: 050
     Dates: start: 20190822, end: 20190902
  14. CARBIDOPA\LEVODOPA [Suspect]
     Active Substance: CARBIDOPA\LEVODOPA
     Dosage: MD: 9.0 ML?CD: 2.7 ML/HR ? 16 HRS?ED: 1.7 ML/UNIT ? 2
     Route: 050
     Dates: start: 20190902, end: 20200711
  15. NEUPRO [Suspect]
     Active Substance: ROTIGOTINE
     Indication: Parkinson^s disease
     Route: 062
     Dates: start: 20190725, end: 20190725
  16. NEUPRO [Suspect]
     Active Substance: ROTIGOTINE
     Indication: Parkinson^s disease
     Route: 062
     Dates: start: 20190725, end: 20190801
  17. NEUPRO [Suspect]
     Active Substance: ROTIGOTINE
     Indication: Parkinson^s disease
     Route: 062
     Dates: start: 20190801, end: 20200122
  18. NEUPRO [Suspect]
     Active Substance: ROTIGOTINE
     Indication: Parkinson^s disease
     Route: 062
     Dates: start: 20200122, end: 20200721
  19. CLONAZEPAM [Concomitant]
     Active Substance: CLONAZEPAM
     Indication: Product used for unknown indication
     Route: 048
  20. SUVOREXANT [Concomitant]
     Active Substance: SUVOREXANT
     Indication: Product used for unknown indication
     Route: 048
  21. DOMPERIDONE [Concomitant]
     Active Substance: DOMPERIDONE
     Indication: Product used for unknown indication
     Route: 048
     Dates: end: 20191016
  22. DOMPERIDONE [Concomitant]
     Active Substance: DOMPERIDONE
     Indication: Product used for unknown indication
     Route: 048
     Dates: start: 20191017, end: 20210402
  23. URAPIDIL [Concomitant]
     Active Substance: URAPIDIL
     Indication: Product used for unknown indication
     Route: 048
     Dates: start: 20190729
  24. EPINASTINE HYDROCHLORIDE [Concomitant]
     Active Substance: EPINASTINE HYDROCHLORIDE
     Indication: Product used for unknown indication
     Route: 048
  25. LUBIPROSTONE [Concomitant]
     Active Substance: LUBIPROSTONE
     Indication: Product used for unknown indication
     Route: 048
  26. SILODOSIN [Concomitant]
     Active Substance: SILODOSIN
     Indication: Product used for unknown indication
     Route: 048
     Dates: start: 20190730, end: 20201224
  27. HEPARINOID [Concomitant]
     Indication: Prophylaxis
     Route: 065
  28. ZOLPIDEM TARTRATE [Concomitant]
     Active Substance: ZOLPIDEM TARTRATE
     Indication: Insomnia
     Dosage: PRN
     Route: 048
     Dates: start: 20200623
  29. CARBIDOPA AND LEVODOPA [Concomitant]
     Active Substance: CARBIDOPA\LEVODOPA
     Indication: Parkinson^s disease
     Dosage: TIME INTERVAL: 0.33333333 DAYS: 600 MILLIGRAM
     Route: 048
     Dates: start: 20210714, end: 20210715
  30. CARBIDOPA AND LEVODOPA [Concomitant]
     Active Substance: CARBIDOPA\LEVODOPA
     Indication: Parkinson^s disease
     Dosage: CARBIDOPA HYDRATE AND LEVODOPA
     Route: 048
     Dates: start: 20200711, end: 20200713
  31. CARBIDOPA AND LEVODOPA [Concomitant]
     Active Substance: CARBIDOPA\LEVODOPA
     Indication: Parkinson^s disease
     Route: 048
  32. TAMSULOSIN HYDROCHLORIDE [Concomitant]
     Active Substance: TAMSULOSIN HYDROCHLORIDE
     Indication: Product used for unknown indication
     Dosage: 0.1 MILLIGRAM
     Route: 048
     Dates: start: 20201225
  33. ROPINIROLE HYDROCHLORIDE [Suspect]
     Active Substance: ROPINIROLE HYDROCHLORIDE
     Indication: Parkinson^s disease
     Route: 048
     Dates: start: 20190728
  34. ROPINIROLE HYDROCHLORIDE [Suspect]
     Active Substance: ROPINIROLE HYDROCHLORIDE
     Indication: Parkinson^s disease
     Route: 048
     Dates: start: 20190729, end: 20190730
  35. ROPINIROLE HYDROCHLORIDE [Suspect]
     Active Substance: ROPINIROLE HYDROCHLORIDE
     Indication: Parkinson^s disease
     Dosage: PROLONGED-RELEASE TABLET
     Route: 048
     Dates: start: 20190730, end: 20190812
  36. ROPINIROLE HYDROCHLORIDE [Suspect]
     Active Substance: ROPINIROLE HYDROCHLORIDE
     Indication: Parkinson^s disease
     Dosage: PROLONGED-RELEASE TABLET
     Route: 048
     Dates: start: 20190812, end: 20190814
  37. ROPINIROLE HYDROCHLORIDE [Suspect]
     Active Substance: ROPINIROLE HYDROCHLORIDE
     Indication: Parkinson^s disease
     Route: 062
     Dates: start: 20220722

REACTIONS (27)
  - Gastric haemorrhage [Recovered/Resolved]
  - Dyskinesia [Not Recovered/Not Resolved]
  - Malaise [Unknown]
  - Diverticulitis [Recovered/Resolved]
  - Hypoaesthesia [Not Recovered/Not Resolved]
  - Medical device discomfort [Unknown]
  - Dermatitis contact [Recovered/Resolved]
  - Dermatitis contact [Recovered/Resolved]
  - Erythema [Recovering/Resolving]
  - Abdominal pain [Recovered/Resolved]
  - Stoma site discharge [Not Recovered/Not Resolved]
  - Stoma site pruritus [Not Recovered/Not Resolved]
  - On and off phenomenon [Unknown]
  - Stoma site pain [Recovered/Resolved]
  - Flatulence [Unknown]
  - Stoma site hypergranulation [Recovered/Resolved]
  - Stoma site pain [Recovered/Resolved]
  - Drug ineffective [Unknown]
  - Stoma site erythema [Recovered/Resolved]
  - Stoma site hypergranulation [Recovering/Resolving]
  - Pain [Not Recovered/Not Resolved]
  - Constipation [Recovered/Resolved]
  - Abdominal pain [Recovered/Resolved]
  - Abdominal pain [Recovered/Resolved]
  - Device occlusion [Unknown]
  - Stoma site pain [Recovered/Resolved]
  - Stoma site hypergranulation [Recovered/Resolved]

NARRATIVE: CASE EVENT DATE: 20190101
